FAERS Safety Report 5503394-9 (Version None)
Quarter: 2007Q4

REPORT INFORMATION
  Report Type: 
  Country: None (occurrence: None)
  Receive Date: 20071031
  Receipt Date: 20071019
  Transmission Date: 20080405
  Serious: Yes (Other)
  Sender: FDA-Public Use
  Company Number: US-PFIZER INC-2007088523

PATIENT
  Sex: Male
  Weight: 90.909 kg

DRUGS (2)
  1. PROCARDIA XL [Suspect]
     Indication: HYPERTENSION
  2. TENORMIN [Concomitant]

REACTIONS (1)
  - LARYNGEAL CANCER [None]
